FAERS Safety Report 9340660 (Version 1)
Quarter: 2013Q2

REPORT INFORMATION
  Report Type: Spontaneous
  Country: US (occurrence: US)
  Receive Date: 20130610
  Receipt Date: 20130610
  Transmission Date: 20140414
  Serious: Yes (Hospitalization)
  Sender: FDA-Public Use
  Company Number: US-GLAXOSMITHKLINE-A1025858A

PATIENT
  Age: 50 Year
  Sex: Male

DRUGS (1)
  1. AVANDIA [Suspect]
     Indication: PRODUCT USED FOR UNKNOWN INDICATION
     Route: 065

REACTIONS (8)
  - Cerebrovascular accident [Unknown]
  - Apallic syndrome [Unknown]
  - Memory impairment [Unknown]
  - Feeling abnormal [Unknown]
  - Gait disturbance [Unknown]
  - Visual impairment [Unknown]
  - Dysphagia [Unknown]
  - Obstruction [Unknown]
